FAERS Safety Report 25684486 (Version 2)
Quarter: 2025Q3

REPORT INFORMATION
  Report Type: Spontaneous
  Country: AU (occurrence: AU)
  Receive Date: 20250815
  Receipt Date: 20250904
  Transmission Date: 20251021
  Serious: Yes (Death, Other)
  Sender: AKESO BIOPHARMA CO., LTD.
  Company Number: AU-Akeso Biopharma Co., Ltd.-2182555

PATIENT
  Age: 47 Year
  Sex: Female

DRUGS (1)
  1. PENPULIMAB-KCQX [Suspect]
     Active Substance: PENPULIMAB-KCQX
     Indication: Colon cancer metastatic

REACTIONS (1)
  - Death [Fatal]
